FAERS Safety Report 19507755 (Version 2)
Quarter: 2021Q3

REPORT INFORMATION
  Report Type: Spontaneous
  Country: US (occurrence: US)
  Receive Date: 20210708
  Receipt Date: 20210714
  Transmission Date: 20211014
  Serious: Yes (Other)
  Sender: FDA-Public Use
  Company Number: US-SA-2021SA224399

PATIENT
  Age: 58 Year
  Sex: Male

DRUGS (1)
  1. ZANTAC [Suspect]
     Active Substance: RANITIDINE HYDROCHLORIDE
     Indication: DYSPEPSIA
     Dosage: 300 MG
     Dates: start: 2014, end: 2019

REACTIONS (4)
  - Nasal cavity cancer [Unknown]
  - Laryngeal cancer [Unknown]
  - Oesophageal carcinoma [Unknown]
  - Throat cancer [Unknown]

NARRATIVE: CASE EVENT DATE: 2019
